FAERS Safety Report 22159672 (Version 6)
Quarter: 2023Q4

REPORT INFORMATION
  Report Type: Report from Study
  Country: US (occurrence: US)
  Receive Date: 20230331
  Receipt Date: 20231205
  Transmission Date: 20240110
  Serious: No
  Sender: FDA-Public Use
  Company Number: US-002147023-NVSC2023US068409

PATIENT
  Sex: Female

DRUGS (7)
  1. KESIMPTA [Suspect]
     Active Substance: OFATUMUMAB
     Indication: Multiple sclerosis
     Dosage: QMO
     Route: 058
  2. KESIMPTA [Suspect]
     Active Substance: OFATUMUMAB
     Dosage: 20 MG (INJECT 1 PEN (20MG) SUBCUTANEOUSLY AT WEEK 0, WEEK 1 AND WEEK 2 AS DIRECTED)
     Route: 058
  3. KESIMPTA [Suspect]
     Active Substance: OFATUMUMAB
     Dosage: 20 MG
     Route: 065
     Dates: start: 202303
  4. OXYBUTYNIN CHLORIDE [Concomitant]
     Active Substance: OXYBUTYNIN CHLORIDE
     Indication: Product used for unknown indication
     Dosage: ER
     Route: 065
  5. BIOTIN [Concomitant]
     Active Substance: BIOTIN
     Indication: Product used for unknown indication
     Route: 065
  6. VITAMINS [Concomitant]
     Active Substance: VITAMINS
     Indication: Product used for unknown indication
     Route: 065
  7. VITAMIN C + ZINK [Concomitant]
     Indication: Product used for unknown indication
     Route: 065

REACTIONS (17)
  - Malaise [Recovering/Resolving]
  - Chest pain [Unknown]
  - Hyperhidrosis [Unknown]
  - Pain in jaw [Unknown]
  - Hyperaesthesia teeth [Unknown]
  - Toothache [Unknown]
  - Mobility decreased [Unknown]
  - Influenza like illness [Unknown]
  - Chills [Unknown]
  - Asthenia [Unknown]
  - Pyrexia [Unknown]
  - Tremor [Unknown]
  - Fatigue [Unknown]
  - Headache [Unknown]
  - COVID-19 [Unknown]
  - Weight increased [Unknown]
  - Therapeutic response unexpected [Unknown]
